FAERS Safety Report 12173321 (Version 1)
Quarter: 2016Q1

REPORT INFORMATION
  Report Type: Report from Study
  Country: US (occurrence: US)
  Receive Date: 20160311
  Receipt Date: 20160311
  Transmission Date: 20160526
  Serious: Yes (Hospitalization)
  Sender: FDA-Public Use
  Company Number: US-KADMON PHARMACEUTICALS, LLC-KAD201603-000918

PATIENT
  Sex: Female
  Weight: 74.87 kg

DRUGS (2)
  1. VIEKIRA PAK [Suspect]
     Active Substance: DASABUVIR\OMBITASVIR\PARITAPREVIR\RITONAVIR
     Indication: HEPATITIS C
     Dosage: TABLET
     Route: 048
     Dates: start: 20160115, end: 20160226
  2. RIBAVIRIN. [Suspect]
     Active Substance: RIBAVIRIN
     Indication: HEPATITIS C
     Dosage: TABLET
     Route: 048
     Dates: start: 20160115, end: 20160226

REACTIONS (5)
  - Vomiting [Recovered/Resolved]
  - Anaemia [Recovering/Resolving]
  - Renal failure [Recovering/Resolving]
  - Asthenia [Unknown]
  - Nausea [Recovered/Resolved]
